APPROVED DRUG PRODUCT: DIPYRIDAMOLE
Active Ingredient: DIPYRIDAMOLE
Strength: 50MG
Dosage Form/Route: TABLET;ORAL
Application: A040542 | Product #002 | TE Code: AB
Applicant: OXFORD PHARMACEUTICALS LLC
Approved: Apr 21, 2006 | RLD: No | RS: No | Type: RX